FAERS Safety Report 18080376 (Version 1)
Quarter: 2020Q3

REPORT INFORMATION
  Report Type: Spontaneous
  Country: RU (occurrence: RU)
  Receive Date: 20200728
  Receipt Date: 20200728
  Transmission Date: 20201103
  Serious: Yes (Other)
  Sender: FDA-Public Use
  Company Number: RU-009507513-2007RUS009511

PATIENT
  Age: 79 Year
  Sex: Male

DRUGS (7)
  1. VORINOSTAT [Suspect]
     Active Substance: VORINOSTAT
     Dosage: 300 MILLIGRAM, QD
     Dates: start: 201702, end: 201702
  2. DACARBAZINE. [Concomitant]
     Active Substance: DACARBAZINE
     Dosage: 375 MILLIGRAM/SQ. METER. EVERY 2 WEEKS
     Dates: start: 201707, end: 201803
  3. VORINOSTAT [Suspect]
     Active Substance: VORINOSTAT
     Dosage: 300 MILLIGRAM, QD
     Dates: start: 201702
  4. VORINOSTAT [Suspect]
     Active Substance: VORINOSTAT
     Indication: T-CELL LYMPHOMA STAGE III
     Dosage: 400 MILLIGRAM, QD
     Dates: start: 201608, end: 201701
  5. DEXAMETHASONE. [Concomitant]
     Active Substance: DEXAMETHASONE
     Dosage: 8 MILLIGRAM, QD, EVERY 2 WEEKS
  6. VORINOSTAT [Suspect]
     Active Substance: VORINOSTAT
     Dosage: 400 MILLIGRAM, QD
     Dates: start: 201702, end: 201702
  7. DACARBAZINE. [Concomitant]
     Active Substance: DACARBAZINE
     Dosage: 375 MILLIGRAM/SQ. METER. EVERY 2 WEEKS
     Dates: start: 201704, end: 201705

REACTIONS (2)
  - Tubulointerstitial nephritis [Recovering/Resolving]
  - Chronic kidney disease [Recovering/Resolving]

NARRATIVE: CASE EVENT DATE: 201701
